FAERS Safety Report 4575117-1 (Version None)
Quarter: 2005Q1

REPORT INFORMATION
  Report Type: 
  Country: None (occurrence: None)
  Receive Date: 20050208
  Receipt Date: 20050127
  Transmission Date: 20050727
  Serious: Yes (Other)
  Sender: FDA-Public Use
  Company Number: US-BRISTOL-MYERS SQUIBB COMPANY-12840278

PATIENT
  Age: 44 Year
  Sex: Female
  Weight: 68 kg

DRUGS (4)
  1. ABILIFY [Suspect]
     Indication: BIPOLAR DISORDER
     Route: 048
     Dates: start: 20040608
  2. TOPAMAX [Concomitant]
     Indication: WEIGHT DECREASED
     Dates: start: 20040608
  3. LEXAPRO [Concomitant]
     Dates: start: 20030901
  4. DEPAKOTE [Concomitant]

REACTIONS (1)
  - AGRANULOCYTOSIS [None]
